FAERS Safety Report 5154773-3 (Version None)
Quarter: 2006Q4

REPORT INFORMATION
  Report Type: 
  Country: None (occurrence: None)
  Receive Date: 20061115
  Receipt Date: 20061115
  Transmission Date: 20070319
  Serious: Yes (Life-Threatening, Hospitalization, Disabling)
  Sender: FDA-Public Use
  Company Number: None

PATIENT
  Sex: Male
  Weight: 99.7913 kg

DRUGS (1)
  1. LAMOTRIGINE [Suspect]
     Indication: AFFECTIVE DISORDER
     Dosage: 25 MG  QD FOR 14 DAYS  PO;  50 MG QD THEREAFTER PO
     Route: 048
     Dates: start: 20061101, end: 20061109

REACTIONS (2)
  - DRUG DOSE OMISSION [None]
  - RASH [None]
